FAERS Safety Report 24404858 (Version 1)
Quarter: 2024Q4

REPORT INFORMATION
  Report Type: Spontaneous
  Country: CN (occurrence: CN)
  Receive Date: 20241007
  Receipt Date: 20241007
  Transmission Date: 20250114
  Serious: No
  Sender: ROCHE
  Company Number: CN-ROCHE-3541548

PATIENT
  Age: 69 Year
  Sex: Male
  Weight: 65.0 kg

DRUGS (2)
  1. GAZYVA [Suspect]
     Active Substance: OBINUTUZUMAB
     Indication: Follicular lymphoma
     Route: 042
     Dates: start: 20240306, end: 20240306
  2. METHYLPREDNISOLONE SODIUM SUCCINATE [Concomitant]
     Active Substance: METHYLPREDNISOLONE SODIUM SUCCINATE
     Indication: Chronic lymphocytic leukaemia
     Route: 042
     Dates: start: 20240306, end: 20240306

REACTIONS (5)
  - Hypersensitivity [Recovering/Resolving]
  - Infusion related reaction [Recovering/Resolving]
  - Myelosuppression [Recovering/Resolving]
  - Activated partial thromboplastin time prolonged [Unknown]
  - Herpes simplex [Recovering/Resolving]

NARRATIVE: CASE EVENT DATE: 20240306
